FAERS Safety Report 15138852 (Version 2)
Quarter: 2018Q3

REPORT INFORMATION
  Report Type: Spontaneous
  Country: US (occurrence: US)
  Receive Date: 20180713
  Receipt Date: 20180801
  Transmission Date: 20181010
  Serious: Yes (Other)
  Sender: FDA-Public Use
  Company Number: US-ASTRAZENECA-2018SE79395

PATIENT
  Age: 69 Year
  Sex: Female
  Weight: 83.9 kg

DRUGS (1)
  1. BYDUREON BCISE [Suspect]
     Active Substance: EXENATIDE
     Indication: NEUROPATHY PERIPHERAL
     Route: 058
     Dates: start: 20180502, end: 20180605

REACTIONS (1)
  - Rash [Recovered/Resolved]
